FAERS Safety Report 4356238-5 (Version None)
Quarter: 2004Q2

REPORT INFORMATION
  Report Type: 
  Country: None (occurrence: None)
  Receive Date: 20040511
  Receipt Date: 20040415
  Transmission Date: 20050107
  Serious: Yes (Hospitalization)
  Sender: FDA-Public Use
  Company Number: F01200400794

PATIENT
  Age: 70 Year
  Sex: Female

DRUGS (4)
  1. (OXALIPLATIN) - SOLUTION - 85 MG/M2 [Suspect]
     Indication: COLORECTAL CANCER
     Dosage: 85 MG/M2 Q2W, INTRAVENOUS NOS
     Route: 042
     Dates: start: 20040330, end: 20040330
  2. FLUOROURACIL [Suspect]
     Dosage: 400 MG/M2 BOLUS THEN 2400 MG/M2 AS 46 HOURS INFUSION Q2W, INTRAVENOUS NOS
     Route: 042
     Dates: start: 20040330, end: 20040330
  3. LEUCOVORIN CALCIUM [Suspect]
     Dosage: 350 MG Q2W, INTRAVENOUS NOS
     Route: 042
     Dates: start: 20040330, end: 20040330
  4. AVASTIN [Suspect]
     Dosage: 5 MG/KG OVER 30-90 MINUTES IV INFUSION ON DAY 1, Q2W, INTRAVENOUS NOS
     Route: 042
     Dates: start: 20040330, end: 20040330

REACTIONS (3)
  - CLOSTRIDIUM COLITIS [None]
  - DIARRHOEA [None]
  - DISEASE PROGRESSION [None]
